FAERS Safety Report 19498943 (Version 1)
Quarter: 2021Q3

REPORT INFORMATION
  Report Type: Spontaneous
  Country: JP (occurrence: JP)
  Receive Date: 20210706
  Receipt Date: 20210706
  Transmission Date: 20211014
  Serious: Yes (Disabling)
  Sender: FDA-Public Use
  Company Number: JP-BAYER-2018-222246

PATIENT
  Age: 42 Year
  Sex: Female
  Weight: 59.4 kg

DRUGS (2)
  1. GADOVIST [Suspect]
     Active Substance: GADOBUTROL
     Indication: MAGNETIC RESONANCE IMAGING ABDOMINAL
     Dosage: 7.5 ML, ONCE
     Route: 040
     Dates: start: 20181127, end: 20181127
  2. GADOVIST [Suspect]
     Active Substance: GADOBUTROL
     Indication: ENDOMETRIOSIS

REACTIONS (10)
  - Hypoxic-ischaemic encephalopathy [None]
  - Motor dysfunction [None]
  - Cardio-respiratory arrest [Recovered/Resolved with Sequelae]
  - Carotid pulse decreased [Recovered/Resolved with Sequelae]
  - Anaphylactic shock [Recovered/Resolved with Sequelae]
  - Language disorder [None]
  - Pulse abnormal [Recovered/Resolved with Sequelae]
  - Seizure [Recovered/Resolved with Sequelae]
  - Mental impairment [None]
  - Loss of consciousness [Recovered/Resolved with Sequelae]

NARRATIVE: CASE EVENT DATE: 20181127
